FAERS Safety Report 9358173 (Version 1)
Quarter: 2013Q2

REPORT INFORMATION
  Report Type: Spontaneous
  Country: US (occurrence: US)
  Receive Date: 20130620
  Receipt Date: 20130620
  Transmission Date: 20140414
  Serious: No
  Sender: FDA-Public Use
  Company Number: US-PFIZER INC-2013182391

PATIENT
  Sex: Female

DRUGS (7)
  1. PROTONIX [Suspect]
  2. CELEBREX [Suspect]
  3. GABAPENTIN [Suspect]
  4. PREDNISONE [Suspect]
  5. PROCAINAMIDE [Suspect]
  6. PAXIL [Suspect]
  7. PROZAC [Suspect]

REACTIONS (1)
  - Drug hypersensitivity [Unknown]
